FAERS Safety Report 5940910-7 (Version None)
Quarter: 2008Q4

REPORT INFORMATION
  Report Type: 
  Country: None (occurrence: None)
  Receive Date: 20081104
  Receipt Date: 20081021
  Transmission Date: 20090506
  Serious: Yes (Life-Threatening, Hospitalization)
  Sender: FDA-Public Use
  Company Number: DE-ELI_LILLY_AND_COMPANY-DE200810005071

PATIENT
  Sex: Female

DRUGS (5)
  1. BYETTA [Suspect]
     Indication: INSULIN RESISTANCE
     Dosage: 10 UG, 2/D
     Route: 058
     Dates: start: 20081003, end: 20081006
  2. ITRACONAZOLE [Concomitant]
     Dosage: UNK, DAILY (1/D)
     Route: 065
  3. LOVASTATIN [Concomitant]
     Dosage: UNK, DAILY (1/D)
     Route: 065
  4. FURORESE [Concomitant]
     Dosage: UNK, DAILY (1/D)
     Route: 065
  5. NEXIUM [Concomitant]
     Dosage: UNK, DAILY (1/D)
     Route: 065

REACTIONS (4)
  - BLOOD GLUCOSE INCREASED [None]
  - HYPONATRAEMIA [None]
  - LIPASE INCREASED [None]
  - SOMNOLENCE [None]
